FAERS Safety Report 9349138 (Version 3)
Quarter: 2013Q4

REPORT INFORMATION
  Report Type: Spontaneous
  Country: FR (occurrence: FR)
  Receive Date: 20130614
  Receipt Date: 20131101
  Transmission Date: 20140711
  Serious: Yes (Death, Hospitalization)
  Sender: FDA-Public Use
  Company Number: FR-TEVA-411559ISR

PATIENT
  Age: 82 Year
  Sex: Male

DRUGS (17)
  1. FUROSEMIDE TEVA 40 MG [Suspect]
     Dosage: 80 MILLIGRAM DAILY; DELIVERED ON 03-MAY-2013 DURING 1 MONTH
     Dates: start: 20130503
  2. ATORVASTATIN TEVA [Concomitant]
     Dosage: 40 MILLIGRAM DAILY;
  3. ATORVASTATIN TEVA [Concomitant]
  4. ATORVASTATIN TEVA [Concomitant]
  5. ATORVASTATIN TEVA [Concomitant]
     Dosage: 2 DOSAGE FORMS DAILY;
  6. ATORVASTATIN TEVA [Concomitant]
     Dosage: 1 DOSAGE FORMS DAILY;
  7. ATORVASTATIN TEVA [Concomitant]
  8. KARDEGIC 75MG [Concomitant]
     Dosage: 75 MILLIGRAM DAILY;
  9. ALFUZOSIN RATIOPHARM LP 10MG [Concomitant]
     Dosage: 10 MILLIGRAM DAILY;
  10. ESOMEPRAZOLE TEVA 20MG [Concomitant]
     Dosage: 20 MILLIGRAM DAILY;
  11. PRADAXA 110MG [Concomitant]
     Dosage: 220 MILLIGRAM DAILY;
  12. AMIODARONE TEVA 200MG [Concomitant]
     Dosage: 2 DOSAGE FORMS DAILY; 2 DF DAILY DURING 5 DAYS AND THEN 1 DF DAILY
  13. AMIODARONE TEVA 200MG [Concomitant]
     Dosage: 1 DOSAGE FORMS DAILY;
  14. SPIRONOLACTONE TEVA 25MG [Concomitant]
     Dosage: 25 MILLIGRAM DAILY; MORNING
  15. FORLAX [Concomitant]
  16. RAMIPRIL TEVA 1.25MG [Concomitant]
     Dosage: 3.75 DOSAGE FORMS DAILY;
  17. IMOVANE [Concomitant]
     Dosage: 7.5 MILLIGRAM DAILY;

REACTIONS (5)
  - Pulmonary oedema [Fatal]
  - Fatigue [Unknown]
  - Dyspnoea [Unknown]
  - Fall [Unknown]
  - Somnolence [Unknown]
